FAERS Safety Report 21266462 (Version 1)
Quarter: 2022Q3

REPORT INFORMATION
  Report Type: Spontaneous
  Country: CA (occurrence: CA)
  Receive Date: 20220829
  Receipt Date: 20220829
  Transmission Date: 20221026
  Serious: Yes (Hospitalization, Other)
  Sender: FDA-Public Use
  Company Number: CA-PFIZER INC-202201093331

PATIENT
  Age: 74 Year
  Sex: Female

DRUGS (1)
  1. AMLODIPINE BESYLATE [Suspect]
     Active Substance: AMLODIPINE BESYLATE
     Indication: Blood pressure management
     Dosage: 5 MG, 1 EVERY 1 DAY
     Route: 048

REACTIONS (22)
  - Amnesia [Unknown]
  - Anxiety [Unknown]
  - Balance disorder [Unknown]
  - Blood potassium decreased [Unknown]
  - Blood sodium decreased [Unknown]
  - Clumsiness [Unknown]
  - Confusional state [Unknown]
  - Decreased appetite [Unknown]
  - Delusion of reference [Unknown]
  - Diarrhoea [Unknown]
  - Discomfort [Unknown]
  - Dizziness [Unknown]
  - Feeling cold [Unknown]
  - Gait disturbance [Unknown]
  - Memory impairment [Unknown]
  - Palpitations [Unknown]
  - Productive cough [Unknown]
  - Sneezing [Unknown]
  - Social anxiety disorder [Unknown]
  - Thinking abnormal [Unknown]
  - Tinnitus [Unknown]
  - Vision blurred [Unknown]
